FAERS Safety Report 9484980 (Version 2)
Quarter: 2013Q3

REPORT INFORMATION
  Report Type: Report from Study
  Country: US (occurrence: US)
  Receive Date: 20130828
  Receipt Date: 20130828
  Transmission Date: 20140515
  Serious: No
  Sender: FDA-Public Use
  Company Number: US-ABBOTT-13P-163-1096283-00

PATIENT
  Age: 44 Year
  Sex: Male
  Weight: 136.2 kg

DRUGS (2)
  1. ANDROGEL [Suspect]
     Indication: BLOOD TESTOSTERONE DECREASED
     Dates: start: 201304, end: 20130505
  2. ANDROGEL [Suspect]
     Dates: start: 20130511

REACTIONS (2)
  - Vomiting [Recovered/Resolved]
  - Pyrexia [Recovered/Resolved]
